FAERS Safety Report 15932350 (Version 1)
Quarter: 2019Q1

REPORT INFORMATION
  Report Type: Spontaneous
  Country: US (occurrence: US)
  Receive Date: 20190207
  Receipt Date: 20190207
  Transmission Date: 20190417
  Serious: Yes (Hospitalization, Other)
  Sender: FDA-Public Use
  Company Number: US-SA-2019SA030298

PATIENT
  Age: 65 Year
  Sex: Male
  Weight: 54.4 kg

DRUGS (23)
  1. NIFEDIPINE. [Suspect]
     Active Substance: NIFEDIPINE
     Indication: BLOOD PRESSURE MEASUREMENT
  2. HUMIRA [Suspect]
     Active Substance: ADALIMUMAB
     Indication: CROHN^S DISEASE
     Dosage: 40 MG, QW
     Route: 058
     Dates: start: 201712, end: 20180426
  3. AMBIEN [Suspect]
     Active Substance: ZOLPIDEM TARTRATE
  4. ISOSORBIDE MONONITRATE. [Suspect]
     Active Substance: ISOSORBIDE MONONITRATE
     Indication: HYPERTENSION
  5. PREDNISONE. [Suspect]
     Active Substance: PREDNISONE
     Indication: INFLAMMATION
  6. GABAPENTIN. [Suspect]
     Active Substance: GABAPENTIN
     Indication: NEUROPATHY PERIPHERAL
  7. PLAVIX [Suspect]
     Active Substance: CLOPIDOGREL BISULFATE
     Indication: ANTICOAGULANT THERAPY
     Route: 065
  8. HYDROXYCHLOROQUINE [Suspect]
     Active Substance: HYDROXYCHLOROQUINE
     Indication: RHEUMATOID ARTHRITIS
  9. VICTOZA [Suspect]
     Active Substance: LIRAGLUTIDE
     Indication: TYPE 2 DIABETES MELLITUS
  10. POTASSIUM [Suspect]
     Active Substance: POTASSIUM
  11. GLYCERYL TRINITRATE [Suspect]
     Active Substance: NITROGLYCERIN
     Indication: CHEST PAIN
  12. FUROSEMIDE. [Suspect]
     Active Substance: FUROSEMIDE
     Indication: FLUID RETENTION
  13. HUMIRA [Suspect]
     Active Substance: ADALIMUMAB
     Indication: RHEUMATOID ARTHRITIS
     Dosage: UNK
     Dates: start: 201805
  14. METOCLOPRAMIDE HYDROCHLORIDE. [Suspect]
     Active Substance: METOCLOPRAMIDE HYDROCHLORIDE
     Indication: GASTROOESOPHAGEAL REFLUX DISEASE
  15. LOPERAMIDE [Suspect]
     Active Substance: LOPERAMIDE
     Indication: DIARRHOEA
  16. FAMOTIDINE. [Suspect]
     Active Substance: FAMOTIDINE
     Indication: GASTROOESOPHAGEAL REFLUX DISEASE
  17. ROSUVASTATIN CALCIUM. [Suspect]
     Active Substance: ROSUVASTATIN CALCIUM
     Indication: BLOOD CHOLESTEROL INCREASED
  18. DOXYCYCLINE. [Suspect]
     Active Substance: DOXYCYCLINE
     Indication: ROSACEA
  19. TRAZODONE HYDROCHLORIDE. [Suspect]
     Active Substance: TRAZODONE HYDROCHLORIDE
  20. VENLAFAXINE HYDROCHLORIDE. [Suspect]
     Active Substance: VENLAFAXINE HYDROCHLORIDE
     Indication: DEPRESSION
     Route: 065
  21. TRANDOLAPRIL. [Suspect]
     Active Substance: TRANDOLAPRIL
     Indication: HYPERTENSION
  22. ESOMEPRAZOLE MAGNESIUM. [Suspect]
     Active Substance: ESOMEPRAZOLE MAGNESIUM
     Indication: GASTROOESOPHAGEAL REFLUX DISEASE
  23. FLOMAX [Suspect]
     Active Substance: TAMSULOSIN HYDROCHLORIDE
     Indication: PROSTATOMEGALY

REACTIONS (7)
  - Arthritis [Recovering/Resolving]
  - Spinal fracture [Not Recovered/Not Resolved]
  - Coronary artery occlusion [Unknown]
  - Mobility decreased [Unknown]
  - Atrioventricular block [Unknown]
  - Herpes zoster [Recovering/Resolving]
  - Osteoporosis [Not Recovered/Not Resolved]

NARRATIVE: CASE EVENT DATE: 201804
